FAERS Safety Report 14047640 (Version 1)
Quarter: 2017Q4

REPORT INFORMATION
  Report Type: Report from Study
  Country: US (occurrence: US)
  Receive Date: 20171005
  Receipt Date: 20171005
  Transmission Date: 20180321
  Serious: No
  Sender: FDA-Public Use
  Company Number: US-AMGEN-USASL2016159860

PATIENT
  Age: 71 Year
  Sex: Female

DRUGS (1)
  1. PROLIA [Suspect]
     Active Substance: DENOSUMAB
     Indication: OSTEOPOROSIS
     Dosage: 60 MG, Q6MO
     Route: 058
     Dates: start: 201605

REACTIONS (5)
  - Feeling jittery [Unknown]
  - Gingival swelling [Unknown]
  - Gingival pain [Unknown]
  - Memory impairment [Unknown]
  - Mastication disorder [Unknown]

NARRATIVE: CASE EVENT DATE: 2016
